FAERS Safety Report 15260514 (Version 1)
Quarter: 2018Q3

REPORT INFORMATION
  Report Type: Spontaneous
  Country: PH (occurrence: PH)
  Receive Date: 20180809
  Receipt Date: 20180809
  Transmission Date: 20181010
  Serious: Yes (Other)
  Sender: FDA-Public Use
  Company Number: PH-MYLANLABS-2018M1060290

PATIENT
  Age: 64 Year
  Sex: Female

DRUGS (1)
  1. LITHIUM. [Suspect]
     Active Substance: LITHIUM
     Indication: BIPOLAR DISORDER
     Route: 065

REACTIONS (4)
  - Hypercalcaemia [Unknown]
  - Hyperparathyroidism [Unknown]
  - Goitre [Unknown]
  - Cerebral infarction [Unknown]
